FAERS Safety Report 5175543-6 (Version None)
Quarter: 2006Q4

REPORT INFORMATION
  Report Type: 
  Country: None (occurrence: None)
  Receive Date: 20061215
  Receipt Date: 20060711
  Transmission Date: 20070319
  Serious: No
  Sender: FDA-Public Use
  Company Number: US-AMGEN-KDL186040

PATIENT
  Sex: Female

DRUGS (2)
  1. ENBREL [Suspect]
     Indication: RHEUMATOID ARTHRITIS
     Route: 058
     Dates: start: 20041001
  2. PLAQUENIL [Concomitant]
     Route: 048
     Dates: start: 20010101

REACTIONS (3)
  - PRURITUS GENERALISED [None]
  - TREMOR [None]
  - URTICARIA [None]
